FAERS Safety Report 9638824 (Version 2)
Quarter: 2013Q4

REPORT INFORMATION
  Report Type: Spontaneous
  Country: US (occurrence: US)
  Receive Date: 20131022
  Receipt Date: 20131022
  Transmission Date: 20140711
  Serious: No
  Sender: FDA-Public Use
  Company Number: US-BRISTOL-MYERS SQUIBB COMPANY-19162015

PATIENT
  Age: 82 Year
  Sex: Female
  Weight: 47.62 kg

DRUGS (6)
  1. ELIQUIS [Suspect]
     Indication: ATRIAL FIBRILLATION
     Dosage: 5 MG TABS ONCE/DAY, THEN 1/2 OF A 5 MG TAB TWICE DAILY FOR A TOTAL DAILY DOSE OF 5 MG
     Route: 048
     Dates: start: 2013
  2. VITAMINS [Concomitant]
  3. MAGNESIUM [Concomitant]
  4. LASIX [Concomitant]
  5. COREG [Concomitant]
  6. XARELTO [Concomitant]
     Indication: ATRIAL FIBRILLATION

REACTIONS (4)
  - Palpitations [Unknown]
  - Fatigue [Unknown]
  - Lymphadenopathy [Unknown]
  - Drug administration error [Unknown]
